FAERS Safety Report 5024858-0 (Version None)
Quarter: 2006Q2

REPORT INFORMATION
  Report Type: 
  Country: None (occurrence: None)
  Receive Date: 20060607
  Receipt Date: 20060601
  Transmission Date: 20061013
  Serious: Yes (Life-Threatening, Hospitalization)
  Sender: FDA-Public Use
  Company Number: 200610504BNE

PATIENT
  Age: 52 Year
  Sex: Male
  Weight: 74.4 kg

DRUGS (11)
  1. SORAFENIB [Suspect]
     Dosage: 400 MG, BID, ORAL
     Route: 048
     Dates: start: 20060420, end: 20060423
  2. DEXAMETHASONE TAB [Concomitant]
  3. LANSAPROSOLE [Concomitant]
  4. CLEXANE [Concomitant]
  5. LACTULOSE [Concomitant]
  6. MOVICOL (MACROGOL, POTASSIUM CHLORIDE, SODIUM BICARBONATE) [Concomitant]
  7. SENNA [Concomitant]
  8. MORPHINE SULFATE [Concomitant]
  9. LOSEC [Concomitant]
  10. SEVREDOL [Concomitant]
  11. GABAPENTIN [Concomitant]

REACTIONS (4)
  - LARGE INTESTINE PERFORATION [None]
  - PELVIC ABSCESS [None]
  - PERITONITIS [None]
  - PURULENCE [None]
